FAERS Safety Report 25817143 (Version 1)
Quarter: 2025Q3

REPORT INFORMATION
  Report Type: Spontaneous
  Country: US (occurrence: None)
  Receive Date: 20250917
  Receipt Date: 20250917
  Transmission Date: 20251020
  Serious: Yes (Hospitalization)
  Sender: FDA-CTU
  Company Number: None

PATIENT
  Sex: Female

DRUGS (11)
  1. REVLIMID [Suspect]
     Active Substance: LENALIDOMIDE
     Indication: Plasma cell myeloma
     Route: 048
     Dates: start: 20240730
  2. ACYCLOVIR [Concomitant]
     Active Substance: ACYCLOVIR
  3. ASPIRIN [Concomitant]
     Active Substance: ASPIRIN
  4. DEXAMETHASONE [Concomitant]
     Active Substance: DEXAMETHASONE
  5. ENTECAVIR [Concomitant]
     Active Substance: ENTECAVIR
  6. FERROUS SULFATE [Concomitant]
     Active Substance: FERROUS SULFATE
  7. GABAPENTIN [Concomitant]
     Active Substance: GABAPENTIN
  8. GLYB/METFORM [Concomitant]
  9. HYOSCYAMINE [Concomitant]
     Active Substance: HYOSCYAMINE
  10. IRON [Concomitant]
     Active Substance: IRON
  11. KLOR-CON [Concomitant]
     Active Substance: POTASSIUM CHLORIDE

REACTIONS (1)
  - Surgery [None]
